FAERS Safety Report 5984823-3 (Version None)
Quarter: 2008Q4

REPORT INFORMATION
  Report Type: 
  Country: None (occurrence: None)
  Receive Date: 20081202
  Receipt Date: 20081118
  Transmission Date: 20090506
  Serious: Yes (Hospitalization)
  Sender: FDA-Public Use
  Company Number: 1-16963511

PATIENT
  Sex: Female

DRUGS (3)
  1. METOPROLOL TARTRATE TABLET 50 MG [Suspect]
     Indication: HYPERTENSION
     Dosage: 50 MG PER DAY, ORAL
     Route: 048
  2. PAROXETINE HCL [Suspect]
     Indication: DEPRESSION
     Dosage: 20 MG PER DAY, ORAL
     Route: 048
  3. ALPRAZOLAM [Concomitant]

REACTIONS (2)
  - ATRIOVENTRICULAR BLOCK COMPLETE [None]
  - INHIBITORY DRUG INTERACTION [None]
